FAERS Safety Report 14457387 (Version 4)
Quarter: 2019Q1

REPORT INFORMATION
  Report Type: Spontaneous
  Country: JP (occurrence: JP)
  Receive Date: 20180130
  Receipt Date: 20190131
  Transmission Date: 20190417
  Serious: Yes (Death, Congenital Anomaly)
  Sender: FDA-Public Use
  Company Number: JP-APOTEX-2018AP005956

PATIENT
  Age: 25 Year
  Sex: Female

DRUGS (4)
  1. PAXIL CR [Suspect]
     Active Substance: PAROXETINE HYDROCHLORIDE
     Dosage: UNK, 1D
     Route: 064
     Dates: end: 20171120
  2. PAXIL CR [Suspect]
     Active Substance: PAROXETINE HYDROCHLORIDE
     Dosage: 50 MG, 1D
     Route: 064
     Dates: end: 20170925
  3. PAXIL CR [Suspect]
     Active Substance: PAROXETINE HYDROCHLORIDE
     Dosage: 12.5 MG, 1D
     Route: 064
     Dates: start: 20171121, end: 20171202
  4. PAXIL CR [Suspect]
     Active Substance: PAROXETINE HYDROCHLORIDE
     Dosage: 37.5 MG, 1D
     Route: 064

REACTIONS (3)
  - Developmental delay [Unknown]
  - Death [Fatal]
  - Foetal exposure during pregnancy [Unknown]

NARRATIVE: CASE EVENT DATE: 20171124
